FAERS Safety Report 5416560-8 (Version None)
Quarter: 2007Q3

REPORT INFORMATION
  Report Type: 
  Country: None (occurrence: None)
  Receive Date: 20070814
  Receipt Date: 20070814
  Transmission Date: 20080115
  Serious: No
  Sender: FDA-Public Use
  Company Number: None

PATIENT
  Age: 24 Year
  Sex: Female
  Weight: 136.5 kg

DRUGS (1)
  1. PAROXETINE [Suspect]
     Indication: GENERALISED ANXIETY DISORDER
     Dosage: ONE 20 MG PILL ONCE A DAY PO
     Route: 048
     Dates: start: 20070809, end: 20070810

REACTIONS (5)
  - FATIGUE [None]
  - FEELING ABNORMAL [None]
  - PALPITATIONS [None]
  - PANIC DISORDER [None]
  - TREMOR [None]
